FAERS Safety Report 6501675-3 (Version None)
Quarter: 2009Q4

REPORT INFORMATION
  Report Type: 
  Country: None (occurrence: None)
  Receive Date: 20091214
  Receipt Date: 20091208
  Transmission Date: 20100525
  Serious: Yes (Other)
  Sender: FDA-Public Use
  Company Number: ALL1-2009-03802

PATIENT
  Age: 15 Year
  Sex: Male
  Weight: 61.2 kg

DRUGS (3)
  1. INTUNIV (GUANFACIEN HDYROCHLORIDE) [Suspect]
     Indication: ATTENTION DEFICIT/HYPERACTIVITY DISORDER
     Dosage: SEE IMAGE
     Route: 048
     Dates: start: 20091113, end: 20091113
  2. INTUNIV (GUANFACIEN HDYROCHLORIDE) [Suspect]
     Indication: ATTENTION DEFICIT/HYPERACTIVITY DISORDER
     Dosage: SEE IMAGE
     Route: 048
     Dates: start: 20091113, end: 20091113
  3. INTUNIV (GUANFACIEN HDYROCHLORIDE) [Suspect]
     Indication: ATTENTION DEFICIT/HYPERACTIVITY DISORDER
     Dosage: SEE IMAGE
     Route: 048
     Dates: start: 20090101

REACTIONS (10)
  - ABDOMINAL PAIN UPPER [None]
  - AGITATION [None]
  - ANGER [None]
  - ANXIETY [None]
  - BLOOD PRESSURE DIASTOLIC DECREASED [None]
  - DRUG INEFFECTIVE [None]
  - HEADACHE [None]
  - HOSTILITY [None]
  - INTENTIONAL OVERDOSE [None]
  - SOMNOLENCE [None]
